FAERS Safety Report 10965301 (Version 4)
Quarter: 2015Q2

REPORT INFORMATION
  Report Type: Spontaneous
  Country: US (occurrence: US)
  Receive Date: 20150330
  Receipt Date: 20150416
  Transmission Date: 20150821
  Serious: Yes (Other)
  Sender: FDA-Public Use
  Company Number: US-PFIZER INC-2015107951

PATIENT
  Age: 69 Year
  Sex: Female
  Weight: 57 kg

DRUGS (2)
  1. LEFLUNOMIDE. [Concomitant]
     Active Substance: LEFLUNOMIDE
     Indication: ARTHRITIS
     Dosage: UNK
  2. XELJANZ [Suspect]
     Active Substance: TOFACITINIB CITRATE
     Indication: RHEUMATOID ARTHRITIS
     Dosage: 5 MG, 2X/DAY
     Dates: start: 201502, end: 20150302

REACTIONS (3)
  - Rheumatoid arthritis [Unknown]
  - Condition aggravated [Unknown]
  - Drug ineffective [Unknown]
